FAERS Safety Report 21407848 (Version 5)
Quarter: 2024Q2

REPORT INFORMATION
  Report Type: Spontaneous
  Country: US (occurrence: US)
  Receive Date: 20221004
  Receipt Date: 20240516
  Transmission Date: 20240715
  Serious: No
  Sender: FDA-Public Use
  Company Number: US-UCBSA-2022050792

PATIENT
  Sex: Male

DRUGS (2)
  1. NEUPRO [Suspect]
     Active Substance: ROTIGOTINE
     Indication: Parkinson^s disease
     Dosage: 4 MILLIGRAM
     Route: 062
  2. NEUPRO [Suspect]
     Active Substance: ROTIGOTINE
     Indication: Restless legs syndrome
     Dosage: 8 MILLIGRAM, ONCE DAILY (QD)
     Route: 062

REACTIONS (7)
  - Condition aggravated [Not Recovered/Not Resolved]
  - Tremor [Unknown]
  - Irritability [Unknown]
  - Therapy interrupted [Unknown]
  - Product availability issue [Unknown]
  - Product adhesion issue [Unknown]
  - Product quality issue [Unknown]
